FAERS Safety Report 16817231 (Version 1)
Quarter: 2019Q3

REPORT INFORMATION
  Report Type: Spontaneous
  Country: AU (occurrence: AU)
  Receive Date: 20190917
  Receipt Date: 20190917
  Transmission Date: 20191005
  Serious: Yes (Hospitalization)
  Sender: FDA-Public Use
  Company Number: AU-ASTRAZENECA-2019SF31090

PATIENT

DRUGS (1)
  1. FORXIGA [Suspect]
     Active Substance: DAPAGLIFLOZIN
     Indication: TYPE 2 DIABETES MELLITUS
     Route: 048

REACTIONS (1)
  - Diabetic ketoacidosis [Unknown]
